FAERS Safety Report 4308977-X (Version None)
Quarter: 2004Q1

REPORT INFORMATION
  Report Type: 
  Country: None (occurrence: None)
  Receive Date: 20040302
  Receipt Date: 20020715
  Transmission Date: 20041129
  Serious: Yes (Hospitalization, Other)
  Sender: FDA-Public Use
  Company Number: US-BRISTOL-MYERS SQUIBB COMPANY-11953379

PATIENT
  Age: 59 Year
  Sex: Male

DRUGS (12)
  1. VIDEX EC [Suspect]
     Indication: HIV INFECTION
     Route: 048
     Dates: start: 20000614, end: 20020715
  2. ATAZANAVIR [Suspect]
     Indication: HIV INFECTION
     Route: 048
     Dates: start: 20020530, end: 20020715
  3. ZERIT [Suspect]
     Indication: HIV INFECTION
  4. EPIVIR [Suspect]
     Indication: HIV INFECTION
     Route: 048
     Dates: start: 20020613, end: 20020715
  5. VIREAD [Suspect]
     Indication: HIV INFECTION
     Route: 048
     Dates: start: 20020613, end: 20020715
  6. NORVIR [Suspect]
     Indication: HIV INFECTION
     Route: 048
     Dates: start: 20020530, end: 20020715
  7. LIPANTHYL [Concomitant]
     Dates: start: 20000920
  8. RIVOTRIL [Concomitant]
     Dates: start: 20020613, end: 20020711
  9. ZOVIRAX [Concomitant]
     Indication: HERPES ZOSTER
     Route: 048
     Dates: start: 20020606, end: 20020615
  10. PEVARYL [Concomitant]
     Dosage: REPORTED AS ^PEVARYL LAIT^, ^CUTANEOUS APPLICATION^
     Dates: start: 20020613, end: 20020711
  11. BACTRIM [Concomitant]
     Indication: PNEUMOCYSTIS CARINII PNEUMONIA
     Route: 048
  12. BACTRIM [Concomitant]
     Indication: PROPHYLAXIS
     Route: 048

REACTIONS (12)
  - ABDOMINAL DISTENSION [None]
  - BLOOD CREATININE INCREASED [None]
  - FANCONI SYNDROME ACQUIRED [None]
  - HAEMATURIA [None]
  - HERPES SIMPLEX [None]
  - HERPES ZOSTER [None]
  - HYPERTENSION [None]
  - HYPERURICAEMIA [None]
  - NEPHRITIS [None]
  - NEPHROPATHY TOXIC [None]
  - PROTEINURIA [None]
  - RENAL TUBULAR DISORDER [None]
